FAERS Safety Report 16500657 (Version 10)
Quarter: 2021Q4

REPORT INFORMATION
  Report Type: Spontaneous
  Country: US (occurrence: US)
  Receive Date: 20190701
  Receipt Date: 20211230
  Transmission Date: 20220304
  Serious: Yes (Disabling, Other)
  Sender: FDA-Public Use
  Company Number: US-PFIZER INC-2019187813

PATIENT
  Age: 69 Year
  Sex: Male

DRUGS (4)
  1. LYRICA [Suspect]
     Active Substance: PREGABALIN
     Indication: Nerve injury
     Dosage: 300 MG, 2X/DAY
     Route: 048
  2. LYRICA [Suspect]
     Active Substance: PREGABALIN
     Dosage: 150 MG, 2X/DAY
  3. LYRICA [Suspect]
     Active Substance: PREGABALIN
     Dosage: UNK
  4. CARISOPRODOL [Concomitant]
     Active Substance: CARISOPRODOL
     Dosage: 250 MG, UNK

REACTIONS (15)
  - Bone cancer [Unknown]
  - Lip and/or oral cavity cancer [Unknown]
  - Internal haemorrhage [Unknown]
  - Haematemesis [Unknown]
  - Thrombosis [Unknown]
  - Chest pain [Unknown]
  - Myocardial infarction [Unknown]
  - Road traffic accident [Unknown]
  - Dizziness [Unknown]
  - Vision blurred [Unknown]
  - Abdominal discomfort [Unknown]
  - Tremor [Unknown]
  - Gait inability [Unknown]
  - Product storage error [Unknown]
  - Poor quality product administered [Unknown]
